FAERS Safety Report 6368436-X (Version None)
Quarter: 2009Q3

REPORT INFORMATION
  Report Type: 
  Country: None (occurrence: None)
  Receive Date: 20090922
  Receipt Date: 20090914
  Transmission Date: 20100115
  Serious: Yes (Hospitalization)
  Sender: FDA-Public Use
  Company Number: B0591882A

PATIENT
  Sex: Male

DRUGS (1)
  1. ALLI [Suspect]
     Route: 048
     Dates: start: 20090530, end: 20090828

REACTIONS (1)
  - INTESTINAL OBSTRUCTION [None]
